FAERS Safety Report 4281870-7 (Version None)
Quarter: 2004Q1

REPORT INFORMATION
  Report Type: 
  Country: None (occurrence: None)
  Receive Date: 20040112
  Receipt Date: 20030904
  Transmission Date: 20041129
  Serious: Yes (Other)
  Sender: FDA-Public Use
  Company Number: NSADSS2001030319

PATIENT
  Age: 81 Year
  Sex: Female
  Weight: 70.3075 kg

DRUGS (3)
  1. REOPRO [Suspect]
     Indication: ILL-DEFINED DISORDER
     Dosage: INTRAVENOUS DRIP
     Route: 041
  2. HEPARIN SODIUM [Suspect]
     Indication: ILL-DEFINED DISORDER
  3. ASPIRIN [Concomitant]

REACTIONS (1)
  - THROMBOCYTOPENIA [None]
